FAERS Safety Report 24853773 (Version 3)
Quarter: 2025Q2

REPORT INFORMATION
  Report Type: Spontaneous
  Country: US (occurrence: US)
  Receive Date: 20250117
  Receipt Date: 20250423
  Transmission Date: 20250716
  Serious: Yes (Hospitalization, Other)
  Sender: SANOFI AVENTIS
  Company Number: US-SA-2025SA013688

PATIENT
  Age: 60 Year
  Sex: Male
  Weight: 73.48 kg

DRUGS (3)
  1. REZUROCK [Suspect]
     Active Substance: BELUMOSUDIL
     Indication: Chronic graft versus host disease
     Dosage: 200 MG, BID
     Route: 048
     Dates: start: 20241210
  2. REZUROCK [Suspect]
     Active Substance: BELUMOSUDIL
     Indication: Non-Hodgkin^s lymphoma
  3. IMBRUVICA [Concomitant]
     Active Substance: IBRUTINIB
     Indication: Non-Hodgkin^s lymphoma
     Dosage: 140 MG, QD
     Route: 048
     Dates: start: 202404

REACTIONS (10)
  - Lung opacity [Unknown]
  - Haematological infection [Unknown]
  - Post procedural infection [Unknown]
  - Central venous catheter removal [Unknown]
  - Neutropenia [Unknown]
  - Platelet count decreased [Unknown]
  - Neutrophil count decreased [Unknown]
  - Red blood cell count decreased [Unknown]
  - Inappropriate schedule of product administration [Unknown]
  - Product use in unapproved indication [Unknown]

NARRATIVE: CASE EVENT DATE: 20241210
